FAERS Safety Report 4669459-9 (Version None)
Quarter: 2005Q2

REPORT INFORMATION
  Report Type: 
  Country: None (occurrence: None)
  Receive Date: 20050519
  Receipt Date: 20050512
  Transmission Date: 20051028
  Serious: Yes (Hospitalization)
  Sender: FDA-Public Use
  Company Number: 2005074216

PATIENT
  Age: 35 Year
  Sex: Male

DRUGS (1)
  1. GEODON [Suspect]
     Indication: ILL-DEFINED DISORDER
     Dosage: SEE IMAGE
     Route: 048

REACTIONS (4)
  - ABNORMAL BEHAVIOUR [None]
  - ERECTION INCREASED [None]
  - EXCESSIVE MASTURBATION [None]
  - SEXUAL ACTIVITY INCREASED [None]
